FAERS Safety Report 6143913-5 (Version None)
Quarter: 2009Q2

REPORT INFORMATION
  Report Type: 
  Country: None (occurrence: None)
  Receive Date: 20090406
  Receipt Date: 20090331
  Transmission Date: 20091009
  Serious: Yes (Other)
  Sender: FDA-Public Use
  Company Number: US-PFIZER INC-2007033539

PATIENT
  Sex: Female
  Weight: 82 kg

DRUGS (8)
  1. PROVERA [Suspect]
     Indication: HORMONE REPLACEMENT THERAPY
     Dosage: UNK
     Route: 048
     Dates: start: 19940101, end: 19960201
  2. MEDROXYPROGESTERONE AND MEDROXYPROGESTERONE ACETATE [Suspect]
     Indication: HORMONE REPLACEMENT THERAPY
     Dosage: UNK
     Route: 048
     Dates: start: 19940101, end: 19960101
  3. PREMARIN [Suspect]
     Indication: HORMONE REPLACEMENT THERAPY
     Dosage: UNK
     Dates: start: 19940101, end: 19960201
  4. PREMPRO [Suspect]
     Indication: HORMONE REPLACEMENT THERAPY
     Dosage: UNK
     Dates: start: 19970301, end: 20020501
  5. CYCRIN [Suspect]
     Indication: HORMONE REPLACEMENT THERAPY
     Dosage: UNK
     Dates: start: 19961022, end: 19970115
  6. VIOXX [Concomitant]
     Indication: ARTHRITIS
     Dosage: UNK
     Dates: start: 19990101, end: 20040101
  7. PAXIL [Concomitant]
     Indication: ANXIETY
     Dosage: UNK
     Dates: start: 19900101
  8. PAXIL [Concomitant]
     Indication: DEPRESSION

REACTIONS (1)
  - BREAST CANCER FEMALE [None]
